FAERS Safety Report 9476270 (Version 2)
Quarter: 2013Q3

REPORT INFORMATION
  Report Type: Spontaneous
  Country: CA (occurrence: None)
  Receive Date: 20130812
  Receipt Date: 20130821
  Transmission Date: 20140515
  Serious: Yes (Other)
  Sender: FDA-Public Use
  Company Number: 2013037108

PATIENT
  Age: 53 Year
  Sex: Male

DRUGS (3)
  1. PRIVIGEN [Suspect]
     Dosage: 20 MG 200 ML X1; PRESCRIBED 70 GM IN 3 CONSECTIVE DAYS
     Route: 042
     Dates: start: 20120429, end: 20120430
  2. ALBURX [Suspect]
     Dosage: 70 GM IN 3
     Route: 042
     Dates: start: 20130427, end: 20130427
  3. CIPROFLOXACIN (CIPROFLOXACIN) [Concomitant]

REACTIONS (4)
  - Haemolysis [None]
  - Haemoglobin decreased [None]
  - Coombs test positive [None]
  - Anti-erythrocyte antibody [None]
